FAERS Safety Report 12207978 (Version 1)
Quarter: 2016Q1

REPORT INFORMATION
  Report Type: Spontaneous
  Country: KR (occurrence: KR)
  Receive Date: 20160324
  Receipt Date: 20160324
  Transmission Date: 20160526
  Serious: Yes (Death)
  Sender: FDA-Public Use
  Company Number: KR-SA-2016SA058452

PATIENT
  Age: 67 Year
  Sex: Female

DRUGS (1)
  1. STILNOX CR [Suspect]
     Active Substance: ZOLPIDEM TARTRATE
     Indication: INSOMNIA
     Dosage: PRODUCT STARTED 3 YEARS AGO
     Route: 048

REACTIONS (5)
  - Internal injury [Fatal]
  - Abnormal behaviour [Unknown]
  - Alcohol interaction [Unknown]
  - Injury [Fatal]
  - Intentional overdose [Fatal]

NARRATIVE: CASE EVENT DATE: 201505
